FAERS Safety Report 20800685 (Version 1)
Quarter: 2022Q2

REPORT INFORMATION
  Report Type: Spontaneous
  Country: JP (occurrence: JP)
  Receive Date: 20220509
  Receipt Date: 20220509
  Transmission Date: 20220720
  Serious: Yes (Other)
  Sender: FDA-Public Use
  Company Number: JP-SAKK-01075168

PATIENT
  Sex: Male

DRUGS (1)
  1. DUPIXENT [Suspect]
     Active Substance: DUPILUMAB
     Indication: Dermatitis atopic
     Dosage: UNK, QM
     Route: 058
     Dates: start: 20210416, end: 20220408

REACTIONS (11)
  - Sjogren^s syndrome [Unknown]
  - Abnormal sensation in eye [Unknown]
  - Lacrimation disorder [Unknown]
  - Lacrimation increased [Unknown]
  - Dizziness [Unknown]
  - Palpitations [Unknown]
  - Balance disorder [Unknown]
  - Conjunctivitis [Unknown]
  - Dry eye [Unknown]
  - Injection site pain [Unknown]
  - Inappropriate schedule of product administration [Unknown]

NARRATIVE: CASE EVENT DATE: 20210101
